FAERS Safety Report 11191042 (Version 2)
Quarter: 2016Q2

REPORT INFORMATION
  Report Type: Report from Study
  Country: US (occurrence: US)
  Receive Date: 20150615
  Receipt Date: 20160615
  Transmission Date: 20160815
  Serious: Yes (Hospitalization)
  Sender: FDA-Public Use
  Company Number: US-ARIAD-2015US004694

PATIENT

DRUGS (10)
  1. COMPAZINE [Concomitant]
     Active Substance: PROCHLORPERAZINE MALEATE
  2. ASPIRIN. [Concomitant]
     Active Substance: ASPIRIN
  3. TRIAMCINOLON [Concomitant]
  4. ICLUSIG [Suspect]
     Active Substance: PONATINIB
     Indication: CHRONIC MYELOID LEUKAEMIA
     Dosage: 45 MG, QD
     Route: 048
     Dates: start: 20150312, end: 20150327
  5. OXYCONTIN [Concomitant]
     Active Substance: OXYCODONE HYDROCHLORIDE
  6. NEURONTIN [Concomitant]
     Active Substance: GABAPENTIN
  7. ATIVAN [Concomitant]
     Active Substance: LORAZEPAM
  8. ACYCLOVIR. [Concomitant]
     Active Substance: ACYCLOVIR
  9. NORVASC [Concomitant]
     Active Substance: AMLODIPINE BESYLATE
  10. OXYCODONE [Concomitant]
     Active Substance: OXYCODONE

REACTIONS (2)
  - Facial paralysis [Recovering/Resolving]
  - Serum sickness [Unknown]

NARRATIVE: CASE EVENT DATE: 20150403
